FAERS Safety Report 24674066 (Version 1)
Quarter: 2024Q4

REPORT INFORMATION
  Report Type: Report from Study
  Country: GB (occurrence: GB)
  Receive Date: 20241128
  Receipt Date: 20241128
  Transmission Date: 20250115
  Serious: Yes (Hospitalization)
  Sender: BAXTER
  Company Number: GB-BAXTER-2024BAX028097

PATIENT
  Sex: Female

DRUGS (15)
  1. DEXTROSE [Suspect]
     Active Substance: DEXTROSE MONOHYDRATE
     Indication: Parenteral nutrition
     Dosage: (COMPONENT QTY: 2200.00 ML)
     Route: 065
     Dates: start: 20241118, end: 20241119
  2. WATER FOR INJECTION [Suspect]
     Active Substance: WATER
     Indication: Parenteral nutrition
     Dosage: (COMPONENT QTY: 20.00 ML)
     Route: 065
     Dates: start: 20241118, end: 20241119
  3. SYNTHAMIN [Suspect]
     Active Substance: AMINO ACIDS
     Indication: Parenteral nutrition
     Dosage: (COMPONENT QTY: 3836.00 ML)
     Route: 065
     Dates: start: 20241118, end: 20241119
  4. OLIVE OIL\SOYBEAN OIL [Suspect]
     Active Substance: OLIVE OIL\SOYBEAN OIL
     Indication: Parenteral nutrition
     Dosage: (COMPONENT QTY: 1100.00 ML)
     Route: 065
     Dates: start: 20241118, end: 20241119
  5. CERNEVIT [Suspect]
     Active Substance: VITAMINS
     Indication: Parenteral nutrition
     Dosage: (COMPONENT QTY: 20.00 ML)
     Route: 065
     Dates: start: 20241118, end: 20241119
  6. WATER FOR INJECTION [Suspect]
     Active Substance: WATER
     Indication: Parenteral nutrition
     Dosage: WATER FOR TPN FORMULATIONS (COMPONENT QTY:120.80  ML)
     Route: 065
     Dates: start: 20241118, end: 20241119
  7. SODIUM CHLORIDE [Suspect]
     Active Substance: SODIUM CHLORIDE
     Indication: Parenteral nutrition
     Dosage: SODIUM CHLORIDE 23.5% (COMPONENT QTY: 194.20.00 ML)
     Route: 065
     Dates: start: 20241118, end: 20241119
  8. SODIUM SELENITE [Suspect]
     Active Substance: SODIUM SELENITE
     Indication: Parenteral nutrition
     Dosage: (SOUTH DEVON HEALTHCARE) 0.2 MICROMOLS/ML
     Route: 065
  9. CALCIUM CHLORIDE [Suspect]
     Active Substance: CALCIUM CHLORIDE
     Indication: Parenteral nutrition
     Dosage: CALCIUM CHLORIDE 1 MMOL/ML (COMPONENT QTY: 8 ML)
     Route: 065
     Dates: start: 20241118, end: 20241119
  10. CUPRIC SULFATE ANHYDROUS [Suspect]
     Active Substance: CUPRIC SULFATE ANHYDROUS
     Indication: Parenteral nutrition
     Dosage: 4 UMOL/ML (COMPONENT QTY: 4.68.00 ML)
     Route: 065
  11. FERRIC CHLORIDE [Suspect]
     Active Substance: FERRIC CHLORIDE
     Indication: Parenteral nutrition
     Dosage: IRON CHLORIDE 1.79UMOL/ML (COMPONENT QTY: 40.20.00 ML)
     Route: 065
  12. MAGNESIUM SULFATE [Suspect]
     Active Substance: MAGNESIUM SULFATE
     Indication: Parenteral nutrition
     Dosage: MAGNESIUM SULPHATE 49.3% BAG (COMPONENT QTY: 12.00.00 ML)
     Route: 065
  13. POTASSIUM CHLORIDE [Suspect]
     Active Substance: POTASSIUM CHLORIDE
     Indication: Parenteral nutrition
     Dosage: POTASSIUM CHLORIDE 22% (COMPONENT QTY: 46.68.00 ML)
     Route: 065
  14. SODIUM GLYCEROPHOSPHATE [Suspect]
     Active Substance: SODIUM GLYCEROPHOSPHATE
     Indication: Parenteral nutrition
     Dosage: SODIUM GLYCEROPHOSPHATE 30%, ((COMPONENT QTY: 71.60 ML)
     Route: 065
  15. UNSPECIFIED INGREDIENT [Suspect]
     Active Substance: UNSPECIFIED INGREDIENT
     Route: 065

REACTIONS (3)
  - Malaise [Unknown]
  - Oxygen saturation decreased [Unknown]
  - Confusional state [Unknown]
